FAERS Safety Report 7874857-6 (Version None)
Quarter: 2011Q4

REPORT INFORMATION
  Report Type: 
  Country: None (occurrence: None)
  Receive Date: 20111031
  Receipt Date: 20111024
  Transmission Date: 20120403
  Serious: Yes (Other)
  Sender: FDA-Public Use
  Company Number: BR-JNJFOC-20111011724

PATIENT
  Age: 15 Year
  Sex: Female
  Weight: 45 kg

DRUGS (1)
  1. ORTHO EVRA [Suspect]
     Indication: POLYCYSTIC OVARIES
     Route: 062
     Dates: start: 20110801

REACTIONS (2)
  - VISUAL IMPAIRMENT [None]
  - OFF LABEL USE [None]
